FAERS Safety Report 6140638-7 (Version None)
Quarter: 2009Q2

REPORT INFORMATION
  Report Type: 
  Country: None (occurrence: None)
  Receive Date: 20090402
  Receipt Date: 20090325
  Transmission Date: 20091009
  Serious: Yes (Other)
  Sender: FDA-Public Use
  Company Number: US-JNJFOC-20090307172

PATIENT
  Sex: Male

DRUGS (7)
  1. DURAGESIC-100 [Suspect]
     Indication: BACK PAIN
     Route: 062
  2. XOPENEX [Concomitant]
     Indication: ASTHMA
     Dosage: AS NEEDED
     Route: 055
  3. ENDOCET [Concomitant]
     Indication: BREAKTHROUGH PAIN
     Dosage: 5/325 MG
     Route: 048
  4. ZOLOFT [Concomitant]
     Indication: DEPRESSION
     Route: 048
  5. CARISOPRODOL [Concomitant]
     Indication: MUSCLE SPASMS
     Route: 048
  6. NEXIUM [Concomitant]
     Indication: HYPERCHLORHYDRIA
     Route: 048
  7. CELEBREX [Concomitant]
     Indication: ARTHRITIS
     Route: 048

REACTIONS (3)
  - DELIRIUM TREMENS [None]
  - DRUG ADMINISTERED AT INAPPROPRIATE SITE [None]
  - NAUSEA [None]
